FAERS Safety Report 19096585 (Version 1)
Quarter: 2021Q2

REPORT INFORMATION
  Report Type: Spontaneous
  Country: US (occurrence: US)
  Receive Date: 20210405
  Receipt Date: 20210405
  Transmission Date: 20210717
  Serious: Yes (Hospitalization)
  Sender: FDA-Public Use
  Company Number: None

PATIENT
  Age: 36 Year
  Sex: Male
  Weight: 81.6 kg

DRUGS (1)
  1. OMNIPAQUE [Suspect]
     Active Substance: IOHEXOL

REACTIONS (3)
  - Post procedural complication [None]
  - Abnormal sensation in eye [None]
  - Eye swelling [None]

NARRATIVE: CASE EVENT DATE: 20210401
